FAERS Safety Report 24630705 (Version 2)
Quarter: 2024Q4

REPORT INFORMATION
  Report Type: Spontaneous
  Country: US (occurrence: US)
  Receive Date: 20241118
  Receipt Date: 20241218
  Transmission Date: 20250114
  Serious: No
  Sender: AMGEN
  Company Number: US-PFIZER INC-202400300103

PATIENT
  Age: 51 Year
  Sex: Female

DRUGS (1)
  1. ENBREL [Suspect]
     Active Substance: ETANERCEPT
     Indication: Product used for unknown indication
     Dosage: UNK
     Route: 065

REACTIONS (2)
  - Injection site reaction [Unknown]
  - Drug hypersensitivity [Unknown]
